FAERS Safety Report 5677934-3 (Version None)
Quarter: 2008Q1

REPORT INFORMATION
  Report Type: 
  Country: None (occurrence: None)
  Receive Date: 20080319
  Receipt Date: 20080306
  Transmission Date: 20080703
  Serious: Yes (Other)
  Sender: FDA-Public Use
  Company Number: OPER20080048

PATIENT
  Sex: Male

DRUGS (1)
  1. OPANA ER [Suspect]

REACTIONS (2)
  - DRUG ABUSE [None]
  - VOMITING [None]
